FAERS Safety Report 5024732-X (Version None)
Quarter: 2006Q2

REPORT INFORMATION
  Report Type: 
  Country: None (occurrence: None)
  Receive Date: 20060607
  Receipt Date: 20060213
  Transmission Date: 20061013
  Serious: Yes (Other)
  Sender: FDA-Public Use
  Company Number: 805#1#2006-00007

PATIENT
  Age: 55 Year
  Sex: Male

DRUGS (9)
  1. ALPROSTADIL [Suspect]
     Indication: PROCEDURAL HYPOTENSION
     Dosage: 840 MCG INTRAVENOUS DRIP
     Route: 041
     Dates: start: 20060116, end: 20060116
  2. FENTANYL CITRATE [Suspect]
     Indication: ANAESTHESIA
     Dosage: 250 MCG INTRAVENOUS
     Route: 042
     Dates: start: 20060116, end: 20060116
  3. VECURONIUM BROMIDE [Suspect]
     Indication: MUSCLE RELAXANT THERAPY
     Dosage: 28.5 MG INTRAVENOUS DRIP
     Route: 041
     Dates: start: 20060116, end: 20060116
  4. FLURBIPROFEN AXETIL                           (FLURBIPROFEN AXETIL) [Suspect]
     Indication: ANALGESIC THERAPY
     Dosage: 50 MG INTRAVENOUS
     Route: 042
     Dates: start: 20060116, end: 20060116
  5. PROPOFOL [Suspect]
     Indication: ANAESTHESIA
     Dosage: 140 MG INTRAVENOUS
     Route: 042
     Dates: start: 20060116, end: 20060116
  6. NEOSTIGMINE METILSULFATE                        (NEOSTIGMINE METILSULF [Suspect]
     Indication: MUSCLE RELAXANT THERAPY
     Dosage: 2.5 MG INTRAVENOUS
     Route: 042
     Dates: start: 20060116, end: 20060116
  7. ATROPINE [Suspect]
     Indication: PROPHYLAXIS
     Dosage: 1 MG INTRAVENOUS
     Route: 042
     Dates: start: 20060116, end: 20060116
  8. SEVOFLURANE [Concomitant]
  9. VEEN-F [Concomitant]

REACTIONS (8)
  - HYPOAESTHESIA [None]
  - INJECTION SITE EXTRAVASATION [None]
  - INJECTION SITE INFLAMMATION [None]
  - INJECTION SITE SWELLING [None]
  - OEDEMA PERIPHERAL [None]
  - PAIN IN EXTREMITY [None]
  - PYREXIA [None]
  - SKIN EXFOLIATION [None]
